FAERS Safety Report 8465602-4 (Version None)
Quarter: 2012Q2

REPORT INFORMATION
  Report Type: 
  Country: None (occurrence: None)
  Receive Date: 20120626
  Receipt Date: 20120618
  Transmission Date: 20120825
  Serious: Yes (Hospitalization)
  Sender: FDA-Public Use
  Company Number: US-BAYER-2012-061864

PATIENT
  Age: 41 Year
  Sex: Female

DRUGS (8)
  1. SERTRALINE HYDROCHLORIDE [Concomitant]
     Dosage: 100 MG, UNK
     Dates: start: 20060908, end: 20070624
  2. SPIRONOLACTONE [Concomitant]
     Indication: SKIN DISORDER
     Dosage: 50 MG, BID
  3. ZOLOFT [Concomitant]
     Dosage: 200 MG, QD
  4. SYNTHROID [Concomitant]
     Dosage: 75 ?G, QD
     Dates: start: 20061227, end: 20070702
  5. AMPICILLIN [Concomitant]
     Indication: ROSACEA
     Dosage: 500 MG, BID
  6. KLONOPIN [Concomitant]
     Dosage: UNK UNK, PRN
  7. YAZ [Suspect]
  8. MOTRIN [Concomitant]
     Dosage: 800 MG, TID

REACTIONS (1)
  - DEEP VEIN THROMBOSIS [None]
